FAERS Safety Report 5480217-8 (Version None)
Quarter: 2007Q4

REPORT INFORMATION
  Report Type: 
  Country: None (occurrence: None)
  Receive Date: 20071009
  Receipt Date: 20070927
  Transmission Date: 20080405
  Serious: Yes (Hospitalization)
  Sender: FDA-Public Use
  Company Number: FR-AMGEN-UK245469

PATIENT
  Sex: Male

DRUGS (2)
  1. NEULASTA [Suspect]
     Indication: DRUG USE FOR UNKNOWN INDICATION
     Route: 065
  2. DENOSUMAB - BLINDED [Suspect]
     Indication: PROSTATE CANCER
     Route: 058
     Dates: start: 20060914

REACTIONS (2)
  - DYSPNOEA [None]
  - PYREXIA [None]
